FAERS Safety Report 7750869-8 (Version None)
Quarter: 2011Q3

REPORT INFORMATION
  Report Type: 
  Country: None (occurrence: None)
  Receive Date: 20110914
  Receipt Date: 20110830
  Transmission Date: 20111222
  Serious: Yes (Hospitalization, Other)
  Sender: FDA-Public Use
  Company Number: US-JNJFOC-2004019342

PATIENT
  Age: 18 Year
  Sex: Female

DRUGS (9)
  1. BENADRYL [Suspect]
     Route: 048
  2. ALL OTHER THERAPEUTIC PRODUCTS [Suspect]
     Indication: PHARYNGEAL OEDEMA
     Dosage: FREQUENCY TEXT: UNKNOWN DAILY DOSE TEXT: UNKNOWN
     Route: 065
     Dates: start: 20040101, end: 20040101
  3. BENADRYL [Suspect]
     Indication: PHARYNGEAL OEDEMA
     Dosage: FREQUENCY TEXT: UNKNOWN DAILY DOSE TEXT: UNKNOWN
     Route: 042
     Dates: start: 20040101, end: 20040101
  4. EPINEPHRINE [Suspect]
     Indication: PHARYNGEAL OEDEMA
     Dosage: FREQUENCY TEXT: UNKNOWN DAILY DOSE TEXT: UNKNOWN
     Route: 030
     Dates: start: 20040101, end: 20040101
  5. ALL OTHER THERAPEUTIC PRODUCTS [Suspect]
     Indication: URTICARIA
     Dosage: FREQUENCY TEXT: UNKNOWN DAILY DOSE TEXT: UNKNOWN
     Route: 065
     Dates: start: 20040101, end: 20040101
  6. EPINEPHRINE [Suspect]
     Indication: URTICARIA
     Dosage: FREQUENCY TEXT: UNKNOWN DAILY DOSE TEXT: UNKNOWN
     Route: 030
     Dates: start: 20040101, end: 20040101
  7. BENADRYL [Suspect]
     Route: 061
     Dates: start: 20040101
  8. BENADRYL [Suspect]
     Indication: SUNBURN
     Route: 048
     Dates: start: 20040101
  9. BENADRYL [Suspect]
     Indication: URTICARIA
     Dosage: FREQUENCY TEXT: UNKNOWN DAILY DOSE TEXT: UNKNOWN
     Route: 042
     Dates: start: 20040101, end: 20040101

REACTIONS (7)
  - UNEVALUABLE EVENT [None]
  - PHARYNGEAL OEDEMA [None]
  - CONDITION AGGRAVATED [None]
  - OVERDOSE [None]
  - DYSPNOEA [None]
  - URTICARIA [None]
  - HYPERSENSITIVITY [None]
